FAERS Safety Report 24197817 (Version 2)
Quarter: 2024Q3

REPORT INFORMATION
  Report Type: Report from Study
  Country: US (occurrence: US)
  Receive Date: 20240811
  Receipt Date: 20240815
  Transmission Date: 20241017
  Serious: Yes (Hospitalization, Other)
  Sender: ABBVIE
  Company Number: US-ABBVIE-5874332

PATIENT
  Age: 95 Year
  Sex: Female

DRUGS (1)
  1. CREON [Suspect]
     Active Substance: PANCRELIPASE AMYLASE\PANCRELIPASE LIPASE\PANCRELIPASE PROTEASE
     Indication: Pancreatic failure
     Route: 048
     Dates: start: 20130801

REACTIONS (10)
  - Pulmonary thrombosis [Recovered/Resolved]
  - Nephrolithiasis [Recovered/Resolved]
  - Respiratory disorder [Recovering/Resolving]
  - Shoulder fracture [Recovering/Resolving]
  - Nephrolithiasis [Recovering/Resolving]
  - Fall [Recovering/Resolving]
  - Thrombosis [Recovering/Resolving]
  - Stent removal [Recovering/Resolving]
  - Memory impairment [Recovering/Resolving]
  - Blood pressure fluctuation [Recovering/Resolving]

NARRATIVE: CASE EVENT DATE: 20240601
